FAERS Safety Report 7902983-1 (Version None)
Quarter: 2011Q4

REPORT INFORMATION
  Report Type: 
  Country: None (occurrence: None)
  Receive Date: 20111107
  Receipt Date: 20111024
  Transmission Date: 20120403
  Serious: Yes (Disabling)
  Sender: FDA-Public Use
  Company Number: 2011MA015757

PATIENT
  Sex: Female

DRUGS (3)
  1. OXAZEPAM [Suspect]
  2. ALPRAZOLAM [Suspect]
  3. DIAZEPAM [Suspect]

REACTIONS (5)
  - VOMITING [None]
  - ANXIETY [None]
  - NERVOUSNESS [None]
  - PAIN [None]
  - DYSPEPSIA [None]
